FAERS Safety Report 18462036 (Version 1)
Quarter: 2020Q4

REPORT INFORMATION
  Report Type: Spontaneous
  Country: US (occurrence: US)
  Receive Date: 20201103
  Receipt Date: 20201103
  Transmission Date: 20210114
  Serious: Yes (Hospitalization)
  Sender: FDA-Public Use
  Company Number: None

PATIENT
  Sex: Male

DRUGS (16)
  1. COMBIVENT, [Concomitant]
  2. ELIQUIS, [Concomitant]
  3. TAMSULOSIN, [Concomitant]
  4. ROSUVASTATIN, TAMSULOSIN, TRIAM/HCTZ [Concomitant]
  5. CLEBREX [Concomitant]
  6. BENZONATATE, [Concomitant]
  7. TRIAM/HCTZ [Concomitant]
     Active Substance: HYDROCHLOROTHIAZIDE\TRIAMTERENE
  8. HUMIRA [Suspect]
     Active Substance: ADALIMUMAB
     Indication: PSORIATIC ARTHROPATHY
     Route: 058
     Dates: start: 20160128
  9. ADVICOR, [Concomitant]
  10. AMIODARONE, [Concomitant]
  11. ASPIRIN LOW, [Concomitant]
  12. BENICAR, [Concomitant]
  13. METHOCARBAM, [Concomitant]
  14. METOPROL TAR, [Concomitant]
  15. AMLODIPINE, [Concomitant]
  16. LOSARTAN POT, [Concomitant]

REACTIONS (1)
  - Vascular graft [None]
